FAERS Safety Report 4546057-9 (Version None)
Quarter: 2005Q1

REPORT INFORMATION
  Report Type: 
  Country: None (occurrence: None)
  Receive Date: 20050103
  Receipt Date: 20041221
  Transmission Date: 20050727
  Serious: Yes (Hospitalization, Other)
  Sender: FDA-Public Use
  Company Number: HQWYE771006DEC04

PATIENT
  Age: 69 Year
  Sex: Male
  Weight: 74 kg

DRUGS (1)
  1. MYLOTARG [Suspect]
     Indication: ACUTE MYELOID LEUKAEMIA
     Dosage: SEE IMAGE
     Route: 042
     Dates: start: 20040806, end: 20041019

REACTIONS (5)
  - CHOLELITHIASIS [None]
  - COLON ADENOMA [None]
  - MALLORY-WEISS SYNDROME [None]
  - PORTAL HYPERTENSIVE GASTROPATHY [None]
  - THROMBOCYTOPENIA [None]
